FAERS Safety Report 22100277 (Version 1)
Quarter: 2023Q1

REPORT INFORMATION
  Report Type: Spontaneous
  Country: US (occurrence: US)
  Receive Date: 20230315
  Receipt Date: 20230315
  Transmission Date: 20230417
  Serious: No
  Sender: FDA-Public Use
  Company Number: US-ABBVIE-4291998

PATIENT
  Sex: Female

DRUGS (1)
  1. NIASPAN [Suspect]
     Active Substance: NIACIN
     Indication: Product used for unknown indication
     Route: 065

REACTIONS (1)
  - Skin disorder [Unknown]
